FAERS Safety Report 7965037-4 (Version None)
Quarter: 2011Q4

REPORT INFORMATION
  Report Type: 
  Country: None (occurrence: None)
  Receive Date: 20111208
  Receipt Date: 20111005
  Transmission Date: 20120403
  Serious: Yes (Hospitalization)
  Sender: FDA-Public Use
  Company Number: US-ROCHE-1019872

PATIENT
  Sex: Female

DRUGS (3)
  1. RIBASPHERE [Suspect]
     Indication: HEPATITIS C
     Route: 048
     Dates: start: 20110608, end: 20110808
  2. TELAPREVIR [Suspect]
     Indication: HEPATITIS C
     Dates: start: 20110608, end: 20110808
  3. PEGASYS [Suspect]
     Indication: HEPATITIS C
     Route: 058
     Dates: start: 20110608, end: 20110808

REACTIONS (2)
  - SKIN ULCER [None]
  - ANAEMIA [None]
